FAERS Safety Report 21297471 (Version 1)
Quarter: 2022Q3

REPORT INFORMATION
  Report Type: Spontaneous
  Country: US (occurrence: None)
  Receive Date: 20220905
  Receipt Date: 20220905
  Transmission Date: 20221027
  Serious: Yes (Disabling)
  Sender: FDA-Public Use
  Company Number: None

PATIENT
  Age: 65 Year
  Sex: Female
  Weight: 53.1 kg

DRUGS (9)
  1. PAXLOVID [Suspect]
     Active Substance: NIRMATRELVIR\RITONAVIR
     Indication: COVID-19
     Dosage: FREQUENCY : TWICE A DAY;?
     Route: 048
     Dates: start: 20220820, end: 20220825
  2. Yuvafem (estradiol) [Concomitant]
  3. RESTASIS [Concomitant]
     Active Substance: CYCLOSPORINE
  4. AZELAIC ACID [Concomitant]
     Active Substance: AZELAIC ACID
  5. VALACYCLOVIR HYDROCHLORIDE [Concomitant]
     Active Substance: VALACYCLOVIR HYDROCHLORIDE
  6. VITAMIN D3 [Concomitant]
     Active Substance: CHOLECALCIFEROL
  7. Fish oils [Concomitant]
  8. Thera Tears preservative [Concomitant]
  9. Genteal Tears Gel [Concomitant]

REACTIONS (3)
  - Malaise [None]
  - Pyrexia [None]
  - Symptom recurrence [None]

NARRATIVE: CASE EVENT DATE: 20220827
